FAERS Safety Report 6758617-5 (Version None)
Quarter: 2010Q2

REPORT INFORMATION
  Report Type: 
  Country: None (occurrence: None)
  Receive Date: 20100603
  Receipt Date: 20100517
  Transmission Date: 20101027
  Serious: Yes (Other)
  Sender: FDA-Public Use
  Company Number: 20100224

PATIENT
  Age: 25 Month
  Sex: Male

DRUGS (2)
  1. DEHYDRATED ALCOHOL INJECTION, USP (8571-10) 99.50% [Suspect]
     Indication: ARTERIOVENOUS MALFORMATION
     Dosage: 11.5 ML INJECTION NOS
  2. GENERAL ANESTHESIA [Concomitant]

REACTIONS (8)
  - ALCOHOL POISONING [None]
  - BLOOD PH DECREASED [None]
  - CARBON DIOXIDE INCREASED [None]
  - HAEMATOCRIT DECREASED [None]
  - HYPOGLYCAEMIA [None]
  - INTRAVASCULAR HAEMOLYSIS [None]
  - PO2 INCREASED [None]
  - SOMNOLENCE [None]
